FAERS Safety Report 8525162-6 (Version None)
Quarter: 2012Q3

REPORT INFORMATION
  Report Type: 
  Country: None (occurrence: None)
  Receive Date: 20120720
  Receipt Date: 20120713
  Transmission Date: 20120928
  Serious: Yes (Other)
  Sender: FDA-Public Use
  Company Number: PHEH2012US010072

PATIENT
  Sex: Female

DRUGS (7)
  1. ZINC SULFATE [Concomitant]
  2. CALCIUM [Concomitant]
  3. GLEEVEC [Suspect]
     Dosage: 300 MG, QD
     Route: 048
     Dates: start: 20120101
  4. MULTI-VITAMIN [Concomitant]
  5. MAGNESIUM SULFATE [Concomitant]
  6. GLEEVEC [Suspect]
     Indication: CHRONIC MYELOID LEUKAEMIA
     Dosage: 400 MG, QD
     Route: 048
     Dates: start: 20111116
  7. ALLOPURINOL [Concomitant]

REACTIONS (3)
  - POLYP [None]
  - WHITE BLOOD CELL COUNT DECREASED [None]
  - NEOPLASM [None]
